FAERS Safety Report 23300382 (Version 1)
Quarter: 2023Q4

REPORT INFORMATION
  Report Type: Spontaneous
  Country: JP (occurrence: JP)
  Receive Date: 20231215
  Receipt Date: 20231215
  Transmission Date: 20240110
  Serious: Yes (Other)
  Sender: FDA-Public Use
  Company Number: JP-DSJP-DSJ-2023-151508

PATIENT
  Age: 89 Year
  Sex: Male

DRUGS (4)
  1. EDOXABAN TOSYLATE [Interacting]
     Active Substance: EDOXABAN TOSYLATE
     Indication: Thrombosis prophylaxis
     Dosage: 30MG/DAY
     Route: 065
  2. EDOXABAN TOSYLATE [Interacting]
     Active Substance: EDOXABAN TOSYLATE
     Indication: Atrial fibrillation
  3. PILSICAINIDE HYDROCHLORIDE [Suspect]
     Active Substance: PILSICAINIDE HYDROCHLORIDE
     Indication: Atrial fibrillation
     Dosage: UNK
     Route: 065
  4. VERAPAMIL HYDROCHLORIDE [Interacting]
     Active Substance: VERAPAMIL HYDROCHLORIDE
     Indication: Atrial fibrillation
     Dosage: UNK
     Route: 065

REACTIONS (3)
  - Haematoma [Unknown]
  - Drug interaction [Unknown]
  - Vascular rupture [Unknown]
